FAERS Safety Report 21959108 (Version 1)
Quarter: 2023Q1

REPORT INFORMATION
  Report Type: Spontaneous
  Country: CA (occurrence: CA)
  Receive Date: 20230206
  Receipt Date: 20230206
  Transmission Date: 20230417
  Serious: Yes (Life-Threatening, Hospitalization, Other)
  Sender: FDA-Public Use
  Company Number: CA-BAUSCH-BL-2023-002002

PATIENT
  Age: 42 Year
  Sex: Male

DRUGS (24)
  1. BUDESONIDE [Suspect]
     Active Substance: BUDESONIDE
     Indication: Product used for unknown indication
     Route: 065
  2. TOBRAMYCIN [Suspect]
     Active Substance: TOBRAMYCIN
     Indication: Influenza like illness
     Route: 048
  3. TOBRAMYCIN [Suspect]
     Active Substance: TOBRAMYCIN
     Indication: Infective pulmonary exacerbation of cystic fibrosis
     Route: 042
  4. TOBRAMYCIN [Suspect]
     Active Substance: TOBRAMYCIN
     Indication: Condition aggravated
     Route: 057
  5. CIPROFLOXACIN [Suspect]
     Active Substance: CIPROFLOXACIN
     Indication: Influenza like illness
     Route: 048
  6. CIPROFLOXACIN [Suspect]
     Active Substance: CIPROFLOXACIN
     Indication: Infective pulmonary exacerbation of cystic fibrosis
  7. CIPROFLOXACIN [Suspect]
     Active Substance: CIPROFLOXACIN
     Indication: Condition aggravated
  8. MEROPENEM [Suspect]
     Active Substance: MEROPENEM
     Indication: Influenza like illness
     Route: 042
  9. MEROPENEM [Suspect]
     Active Substance: MEROPENEM
     Indication: Infective pulmonary exacerbation of cystic fibrosis
  10. MEROPENEM [Suspect]
     Active Substance: MEROPENEM
     Indication: Condition aggravated
  11. OMALIZUMAB [Suspect]
     Active Substance: OMALIZUMAB
     Indication: Product used for unknown indication
     Route: 065
  12. VANCOMYCIN HYDROCHLORIDE [Suspect]
     Active Substance: VANCOMYCIN HYDROCHLORIDE
     Indication: Infective pulmonary exacerbation of cystic fibrosis
     Route: 065
  13. VANCOMYCIN HYDROCHLORIDE [Suspect]
     Active Substance: VANCOMYCIN HYDROCHLORIDE
     Indication: Condition aggravated
     Route: 042
  14. TAMIFLU [Suspect]
     Active Substance: OSELTAMIVIR PHOSPHATE
     Indication: Infective pulmonary exacerbation of cystic fibrosis
     Route: 065
  15. TAMIFLU [Suspect]
     Active Substance: OSELTAMIVIR PHOSPHATE
     Indication: Condition aggravated
     Route: 048
  16. TAMIFLU [Suspect]
     Active Substance: OSELTAMIVIR PHOSPHATE
     Indication: Influenza like illness
  17. AZITHROMYCIN [Concomitant]
     Active Substance: AZITHROMYCIN
     Indication: Product used for unknown indication
     Route: 065
  18. CAYSTON [Concomitant]
     Active Substance: AZTREONAM
     Indication: Product used for unknown indication
     Route: 065
  19. CICLESONIDE [Concomitant]
     Active Substance: CICLESONIDE
     Indication: Product used for unknown indication
     Route: 065
  20. DEOXYRIBONUCLIEC ACID [Concomitant]
     Active Substance: DEOXYRIBONUCLIEC ACID
     Indication: Product used for unknown indication
     Route: 065
  21. HYDROCORTISONE [Concomitant]
     Active Substance: HYDROCORTISONE
     Indication: Product used for unknown indication
     Route: 065
  22. MONTELUKAST [Concomitant]
     Active Substance: MONTELUKAST SODIUM
     Indication: Product used for unknown indication
     Route: 065
  23. PANCRELIPASE [Concomitant]
     Active Substance: PANCRELIPASE
     Indication: Product used for unknown indication
     Route: 065
  24. PULMOZYME [Concomitant]
     Active Substance: DORNASE ALFA
     Indication: Product used for unknown indication
     Route: 065

REACTIONS (4)
  - Sepsis [Not Recovered/Not Resolved]
  - Staphylococcal sepsis [Not Recovered/Not Resolved]
  - Toxic epidermal necrolysis [Not Recovered/Not Resolved]
  - Rash morbilliform [Not Recovered/Not Resolved]
